FAERS Safety Report 11726737 (Version 4)
Quarter: 2024Q1

REPORT INFORMATION
  Report Type: Spontaneous
  Country: GB (occurrence: GB)
  Receive Date: 20151112
  Receipt Date: 20240311
  Transmission Date: 20240410
  Serious: Yes (Hospitalization)
  Sender: FDA-Public Use
  Company Number: GB-AUROBINDO-AUR-APL-2015-09971

PATIENT
  Age: 49 Year
  Sex: Male

DRUGS (62)
  1. ARIPIPRAZOLE [Suspect]
     Active Substance: ARIPIPRAZOLE
     Indication: Schizophrenia
     Dosage: 20 MG, ONCE A DAY
     Route: 048
     Dates: start: 201406
  2. SERTRALINE [Suspect]
     Active Substance: SERTRALINE HYDROCHLORIDE
     Indication: Schizophrenia
     Dosage: 150 MILLIGRAM, ONCE A DAY
     Route: 048
     Dates: start: 201406
  3. ABILIFY [Suspect]
     Active Substance: ARIPIPRAZOLE
     Indication: Schizophrenia
     Dosage: 20 MG, QD
     Route: 048
     Dates: start: 201406
  4. ASPIRIN [Concomitant]
     Active Substance: ASPIRIN
     Indication: Product used for unknown indication
     Dosage: UNK
     Route: 065
  5. ASPIRIN [Concomitant]
     Active Substance: ASPIRIN
     Dosage: UNK ()
     Route: 065
  6. ATENOLOL [Concomitant]
     Active Substance: ATENOLOL
     Indication: Product used for unknown indication
     Dosage: UNK
     Route: 065
  7. ATENOLOL [Concomitant]
     Active Substance: ATENOLOL
     Dosage: UNK ()
     Route: 065
  8. ATENOLOL [Concomitant]
     Active Substance: ATENOLOL
     Dosage: UNK ()
     Route: 065
  9. ATENOLOL [Concomitant]
     Active Substance: ATENOLOL
     Dosage: UNK ()
     Route: 065
  10. ESOMEPRAZOLE [Concomitant]
     Active Substance: ESOMEPRAZOLE
     Indication: Product used for unknown indication
     Route: 065
  11. ESOMEPRAZOLE [Concomitant]
     Active Substance: ESOMEPRAZOLE
     Dosage: UNK ()
     Route: 065
  12. ESOMEPRAZOLE [Concomitant]
     Active Substance: ESOMEPRAZOLE
     Dosage: UNK ()
     Route: 065
  13. ESOMEPRAZOLE [Concomitant]
     Active Substance: ESOMEPRAZOLE
     Dosage: UNK ()
     Route: 065
  14. EZETIMIBE [Concomitant]
     Active Substance: EZETIMIBE
     Indication: Product used for unknown indication
     Dosage: UNK
     Route: 065
  15. EZETIMIBE [Concomitant]
     Active Substance: EZETIMIBE
     Dosage: UNK ()
     Route: 065
  16. EZETIMIBE [Concomitant]
     Active Substance: EZETIMIBE
     Dosage: UNK ()
     Route: 065
  17. EZETIMIBE [Concomitant]
     Active Substance: EZETIMIBE
     Dosage: UNK ()
     Route: 065
  18. FERROUS SULFATE [Concomitant]
     Active Substance: FERROUS SULFATE
     Indication: Product used for unknown indication
     Dosage: UNK
     Route: 065
  19. NITROGLYCERIN [Concomitant]
     Active Substance: NITROGLYCERIN
     Indication: Product used for unknown indication
     Dosage: UNK
     Route: 065
  20. NITROGLYCERIN [Concomitant]
     Active Substance: NITROGLYCERIN
     Dosage: UNK ()
     Route: 065
  21. NITROGLYCERIN [Concomitant]
     Active Substance: NITROGLYCERIN
     Dosage: UNK ()
     Route: 065
  22. NITROGLYCERIN [Concomitant]
     Active Substance: NITROGLYCERIN
     Dosage: UNK ()
     Route: 065
  23. LACTULOSE [Concomitant]
     Active Substance: LACTULOSE
     Indication: Product used for unknown indication
     Route: 065
  24. LACTULOSE [Concomitant]
     Active Substance: LACTULOSE
     Dosage: UNK ()
     Route: 065
  25. LACTULOSE [Concomitant]
     Active Substance: LACTULOSE
     Dosage: UNK ()
     Route: 065
  26. LACTULOSE [Concomitant]
     Active Substance: LACTULOSE
     Dosage: UNK ()
     Route: 065
  27. METFORMIN [Concomitant]
     Active Substance: METFORMIN HYDROCHLORIDE
     Indication: Product used for unknown indication
     Dosage: UNK
     Route: 065
  28. METFORMIN [Concomitant]
     Active Substance: METFORMIN HYDROCHLORIDE
     Dosage: UNK ()
     Route: 065
  29. METFORMIN [Concomitant]
     Active Substance: METFORMIN HYDROCHLORIDE
     Dosage: UNK ()
     Route: 065
  30. METHOCARBAMOL [Concomitant]
     Active Substance: METHOCARBAMOL
     Indication: Product used for unknown indication
     Route: 065
  31. METHOCARBAMOL [Concomitant]
     Active Substance: METHOCARBAMOL
     Dosage: UNK ()
     Route: 065
  32. METHOCARBAMOL [Concomitant]
     Active Substance: METHOCARBAMOL
     Dosage: UNK ()
     Route: 065
  33. METHOCARBAMOL [Concomitant]
     Active Substance: METHOCARBAMOL
     Dosage: UNK ()
     Route: 065
  34. NICORANDIL [Concomitant]
     Active Substance: NICORANDIL
     Indication: Product used for unknown indication
     Dosage: UNK
     Route: 065
  35. NICORANDIL [Concomitant]
     Active Substance: NICORANDIL
     Dosage: UNK ()
     Route: 065
  36. NICORANDIL [Concomitant]
     Active Substance: NICORANDIL
     Dosage: UNK ()
     Route: 065
  37. NICORANDIL [Concomitant]
     Active Substance: NICORANDIL
     Dosage: UNK ()
     Route: 065
  38. PREGABALIN [Concomitant]
     Active Substance: PREGABALIN
     Indication: Product used for unknown indication
     Dosage: UNK
     Route: 065
  39. PREGABALIN [Concomitant]
     Active Substance: PREGABALIN
     Dosage: UNK ()
     Route: 065
  40. PREGABALIN [Concomitant]
     Active Substance: PREGABALIN
     Dosage: UNK ()
     Route: 065
  41. PREGABALIN [Concomitant]
     Active Substance: PREGABALIN
     Dosage: UNK ()
     Route: 065
  42. ALBUTEROL [Concomitant]
     Active Substance: ALBUTEROL
     Indication: Product used for unknown indication
     Dosage: UNK
     Route: 065
  43. ALBUTEROL [Concomitant]
     Active Substance: ALBUTEROL
     Dosage: UNK ()
     Route: 065
  44. ALBUTEROL [Concomitant]
     Active Substance: ALBUTEROL
     Dosage: UNK ()
     Route: 065
  45. ALBUTEROL [Concomitant]
     Active Substance: ALBUTEROL
     Dosage: UNK ()
     Route: 065
  46. SIMVASTATIN [Concomitant]
     Active Substance: SIMVASTATIN
     Indication: Product used for unknown indication
     Dosage: UNK
     Route: 065
  47. SIMVASTATIN [Concomitant]
     Active Substance: SIMVASTATIN
     Dosage: UNK ()
     Route: 065
  48. SIMVASTATIN [Concomitant]
     Active Substance: SIMVASTATIN
     Dosage: UNK ()
     Route: 065
  49. SIMVASTATIN [Concomitant]
     Active Substance: SIMVASTATIN
     Dosage: UNK ()
     Route: 065
  50. SIMVASTATIN [Concomitant]
     Active Substance: SIMVASTATIN
     Dosage: UNK
     Route: 065
  51. THIAMINE [Concomitant]
     Active Substance: THIAMINE
     Indication: Product used for unknown indication
     Dosage: UNK
     Route: 065
  52. THIAMINE [Concomitant]
     Active Substance: THIAMINE
     Dosage: UNK ()
     Route: 065
  53. THIAMINE [Concomitant]
     Active Substance: THIAMINE
     Dosage: ()
     Route: 065
  54. TRAMADOL [Concomitant]
     Active Substance: TRAMADOL\TRAMADOL HYDROCHLORIDE
     Indication: Product used for unknown indication
     Dosage: UNK
     Route: 065
  55. TRAMADOL [Concomitant]
     Active Substance: TRAMADOL\TRAMADOL HYDROCHLORIDE
     Dosage: UNK ()
     Route: 065
  56. ZOPICLONE [Concomitant]
     Active Substance: ZOPICLONE
     Indication: Product used for unknown indication
     Dosage: UNK
     Route: 065
  57. ZOPICLONE [Concomitant]
     Active Substance: ZOPICLONE
     Dosage: UNK ()
     Route: 065
  58. ZOPICLONE [Concomitant]
     Active Substance: ZOPICLONE
     Dosage: UNK ()
     Route: 065
  59. ZOPICLONE [Concomitant]
     Active Substance: ZOPICLONE
     Dosage: UNK ()
     Route: 065
  60. VITAMIN B COMPLEX [Concomitant]
     Active Substance: CYANOCOBALAMIN\DEXPANTHENOL\NIACINAMIDE\PYRIDOXINE HYDROCHLORIDE\RIBOFLAVIN 5^-PHOSPHATE SODIUM\THIA
     Indication: Product used for unknown indication
     Dosage: UNK ()
     Route: 065
  61. VITAMIN B COMPLEX [Concomitant]
     Active Substance: CYANOCOBALAMIN\DEXPANTHENOL\NIACINAMIDE\PYRIDOXINE HYDROCHLORIDE\RIBOFLAVIN 5^-PHOSPHATE SODIUM\THIA
     Dosage: UNK ()
     Route: 065
  62. VITAMIN B COMPLEX [Concomitant]
     Active Substance: CYANOCOBALAMIN\DEXPANTHENOL\NIACINAMIDE\PYRIDOXINE HYDROCHLORIDE\RIBOFLAVIN 5^-PHOSPHATE SODIUM\THIA
     Dosage: UNK ()
     Route: 065

REACTIONS (4)
  - Hyperglycaemia [Recovered/Resolved with Sequelae]
  - Vision blurred [Not Recovered/Not Resolved]
  - Polyuria [Unknown]
  - Polydipsia [Unknown]

NARRATIVE: CASE EVENT DATE: 20151014
